FAERS Safety Report 11063315 (Version 3)
Quarter: 2015Q4

REPORT INFORMATION
  Report Type: Spontaneous
  Country: US (occurrence: US)
  Receive Date: 20150424
  Receipt Date: 20151201
  Transmission Date: 20160304
  Serious: Yes (Other)
  Sender: FDA-Public Use
  Company Number: US-GLAXOSMITHKLINE INC.-US2015GSK054647

PATIENT
  Sex: Female
  Weight: 82.99 kg

DRUGS (5)
  1. AUGMENTIN [Suspect]
     Active Substance: AMOXICILLIN\CLAVULANATE POTASSIUM
     Indication: DENTAL OPERATION
     Dosage: 875 MG, BID
     Route: 048
     Dates: start: 20150413
  2. LOMOTIL [Suspect]
     Active Substance: ATROPINE SULFATE\DIPHENOXYLATE HYDROCHLORIDE
  3. VOTRIENT [Suspect]
     Active Substance: PAZOPANIB HYDROCHLORIDE
     Indication: RENAL CELL CARCINOMA
     Dosage: 400 MG, UNK
     Route: 048
     Dates: start: 20140829
  4. ZOMETA [Suspect]
     Active Substance: ZOLEDRONIC ACID
  5. SUTENT [Suspect]
     Active Substance: SUNITINIB MALATE
     Dosage: 37.5 MG, UNK

REACTIONS (13)
  - Hepatic enzyme increased [Recovered/Resolved]
  - Decreased appetite [Unknown]
  - Drug intolerance [Unknown]
  - Fatigue [Unknown]
  - Weight decreased [Unknown]
  - Diarrhoea [Unknown]
  - Impaired healing [Unknown]
  - Adverse drug reaction [Unknown]
  - Osteonecrosis of jaw [Recovering/Resolving]
  - Pain in jaw [Unknown]
  - Emotional disorder [Unknown]
  - Exposed bone in jaw [Unknown]
  - Dental caries [Unknown]
